FAERS Safety Report 20378603 (Version 1)
Quarter: 2022Q1

REPORT INFORMATION
  Report Type: Spontaneous
  Country: US (occurrence: None)
  Receive Date: 20220125
  Receipt Date: 20220125
  Transmission Date: 20220424
  Serious: No
  Sender: FDA-Public Use
  Company Number: None

PATIENT
  Sex: Female

DRUGS (1)
  1. COPAXONE [Suspect]
     Active Substance: GLATIRAMER ACETATE
     Indication: Multiple sclerosis
     Dosage: 4OMG THREE TIMES A WEEK SUBCUTANEOUS?
     Route: 058
     Dates: start: 20071105

REACTIONS (5)
  - Sepsis [None]
  - Bell^s palsy [None]
  - Jaw disorder [None]
  - Osteomyelitis [None]
  - Urinary tract infection [None]
